FAERS Safety Report 10736826 (Version 1)
Quarter: 2015Q1

REPORT INFORMATION
  Report Type: Spontaneous
  Country: US (occurrence: None)
  Receive Date: 20150123
  Receipt Date: 20150123
  Transmission Date: 20150721
  Serious: Yes (Hospitalization)
  Sender: FDA-Public Use
  Company Number: None

PATIENT
  Age: 71 Year
  Sex: Female
  Weight: 60.3 kg

DRUGS (7)
  1. LOSARTAN [Concomitant]
     Active Substance: LOSARTAN
  2. CARBOPLATIN. [Suspect]
     Active Substance: CARBOPLATIN
     Dates: end: 20141230
  3. DILANTIN [Concomitant]
     Active Substance: PHENYTOIN
  4. PROAIR INHALER [Concomitant]
  5. BEVACIZUMAB (RHUMAB VEGF) [Suspect]
     Active Substance: BEVACIZUMAB
     Dates: end: 20141230
  6. SYMBICORT [Concomitant]
     Active Substance: BUDESONIDE\FORMOTEROL FUMARATE DIHYDRATE
  7. TAXOL [Suspect]
     Active Substance: PACLITAXEL
     Dates: end: 20141230

REACTIONS (3)
  - Pulse absent [None]
  - Respiratory arrest [None]
  - Dyspnoea [None]

NARRATIVE: CASE EVENT DATE: 20150120
